FAERS Safety Report 4479620-4 (Version None)
Quarter: 2004Q4

REPORT INFORMATION
  Report Type: 
  Country: None (occurrence: None)
  Receive Date: 20041018
  Receipt Date: 20041005
  Transmission Date: 20050328
  Serious: Yes (Death)
  Sender: FDA-Public Use
  Company Number: 2004067493

PATIENT
  Age: 76 Year
  Sex: Male
  Weight: 72 kg

DRUGS (5)
  1. TAHOR (ATORVASTATIN) [Suspect]
     Indication: ILL-DEFINED DISORDER
     Dosage: (1 IN 1 D)
  2. DIGOXIN [Concomitant]
  3. QUINAPRIL HCL [Concomitant]
  4. BUFLOMEDIL (BUFLOMEDIL) [Concomitant]
  5. LYSINE (LYSINE) [Concomitant]

REACTIONS (2)
  - CARDIAC DISORDER [None]
  - HEPATITIS [None]
